FAERS Safety Report 7157763-4 (Version None)
Quarter: 2010Q4

REPORT INFORMATION
  Report Type: 
  Country: None (occurrence: None)
  Receive Date: 20101214
  Receipt Date: 20100205
  Transmission Date: 20110411
  Serious: No
  Sender: FDA-Public Use
  Company Number: US-ASTRAZENECA-2010SE05336

PATIENT
  Age: 84 Year
  Sex: Female
  Weight: 61.2 kg

DRUGS (4)
  1. CRESTOR [Suspect]
     Route: 048
     Dates: start: 20090101
  2. TOPROL-XL [Suspect]
     Route: 048
  3. METOPROLOL [Suspect]
  4. TYLENOL (CAPLET) [Concomitant]
     Indication: PAIN

REACTIONS (2)
  - ALOPECIA [None]
  - COUGH [None]
